FAERS Safety Report 4332558-5 (Version None)
Quarter: 2004Q1

REPORT INFORMATION
  Report Type: 
  Country: None (occurrence: None)
  Receive Date: 20040330
  Receipt Date: 20040318
  Transmission Date: 20041129
  Serious: Yes (Other)
  Sender: FDA-Public Use
  Company Number: DK-JNJFOC-20040304466

PATIENT
  Age: 39 Year
  Sex: Female

DRUGS (1)
  1. REMICADE [Suspect]
     Dosage: INTRAVENOUS
     Route: 042

REACTIONS (4)
  - FLUSHING [None]
  - HYPERSENSITIVITY [None]
  - LOCAL SWELLING [None]
  - SWELLING FACE [None]
